FAERS Safety Report 8611905-X (Version None)
Quarter: 2012Q3

REPORT INFORMATION
  Report Type: 
  Country: None (occurrence: None)
  Receive Date: 20120822
  Receipt Date: 20120813
  Transmission Date: 20120928
  Serious: Yes (Other)
  Sender: FDA-Public Use
  Company Number: PHHY2012BR071061

PATIENT
  Sex: Female

DRUGS (4)
  1. ADDERA D3 [Concomitant]
     Indication: OSTEOARTHRITIS
     Dosage: 6 DRP, QD
     Dates: end: 20120101
  2. ALENDRONATE SODIUM [Suspect]
     Indication: OSTEOARTHRITIS
     Dosage: 1 DF, QW
     Route: 048
     Dates: end: 20120101
  3. CONDROFLEX [Suspect]
     Indication: OSTEOARTHRITIS
     Dosage: 1 DF, QD
     Route: 048
     Dates: end: 20120101
  4. CALCIUM D3 [Suspect]
     Indication: OSTEOARTHRITIS
     Dosage: 1 DF, QD
     Route: 048

REACTIONS (5)
  - DEPRESSION [None]
  - FRACTURE [None]
  - DEMENTIA ALZHEIMER'S TYPE [None]
  - MEMORY IMPAIRMENT [None]
  - POOR QUALITY SLEEP [None]
